FAERS Safety Report 21978036 (Version 2)
Quarter: 2023Q1

REPORT INFORMATION
  Report Type: Spontaneous
  Country: US (occurrence: US)
  Receive Date: 20230210
  Receipt Date: 20230222
  Transmission Date: 20230418
  Serious: Yes (Hospitalization, Other)
  Sender: FDA-Public Use
  Company Number: US-PFIZER INC-PV202300025711

PATIENT
  Age: 70 Year
  Sex: Male

DRUGS (2)
  1. GEMCITABINE HYDROCHLORIDE [Suspect]
     Active Substance: GEMCITABINE HYDROCHLORIDE
     Indication: Squamous cell carcinoma of lung
     Dosage: 1688 MG, WEEKLY (WITH A CUMULATIVE DOSE OF 13 504 MG, RECEIVED 4 CYCLES)
  2. CISPLATIN [Concomitant]
     Active Substance: CISPLATIN
     Indication: Squamous cell carcinoma of lung
     Dosage: 43 MG, EVERY 3 WEEK (WITH A CUMULATIVE DOSE OF 172 MG RECEIVED 4 CYCLE)

REACTIONS (1)
  - Arteriospasm coronary [Recovered/Resolved]
